FAERS Safety Report 6335518-8 (Version None)
Quarter: 2009Q3

REPORT INFORMATION
  Report Type: 
  Country: None (occurrence: None)
  Receive Date: 20090831
  Receipt Date: 20090819
  Transmission Date: 20100115
  Serious: Yes (Death)
  Sender: FDA-Public Use
  Company Number: JP-PFIZER INC-2009258979

PATIENT
  Age: 41 Year

DRUGS (3)
  1. SILDENAFIL CITRATE [Suspect]
     Indication: PULMONARY ARTERIAL HYPERTENSION
     Dosage: 20 MG, 3X/DAY
     Route: 048
     Dates: start: 20080601, end: 20090119
  2. TRACLEER [Concomitant]
     Route: 048
  3. DORNER [Concomitant]
     Route: 048

REACTIONS (1)
  - DEATH [None]
